FAERS Safety Report 18841455 (Version 2)
Quarter: 2021Q1

REPORT INFORMATION
  Report Type: Report from Study
  Country: None (occurrence: US)
  Receive Date: 20210204
  Receipt Date: 20210222
  Transmission Date: 20210419
  Serious: Yes (Hospitalization)
  Sender: FDA-Public Use
  Company Number: US-ABBVIE-21K-163-3759551-00

PATIENT
  Sex: Male
  Weight: 64.47 kg

DRUGS (10)
  1. PANTOPRAZOLE [Concomitant]
     Active Substance: PANTOPRAZOLE
     Indication: GASTROOESOPHAGEAL REFLUX DISEASE
  2. OXYCODONE [Concomitant]
     Active Substance: OXYCODONE
     Indication: PAIN
  3. GABAPENTIN. [Concomitant]
     Active Substance: GABAPENTIN
     Indication: ULCER
  4. CREON [Suspect]
     Active Substance: PANCRELIPASE AMYLASE\PANCRELIPASE LIPASE\PANCRELIPASE PROTEASE
     Indication: PANCREATIC ENZYME REPLACEMENT THERAPY
     Dosage: 2 CAPSULES WITH MEALS AND 2 CAPSULES WITH SNACKS/8 TO 10 CAPSULES A DAY
     Route: 048
     Dates: start: 201902
  5. NIFEDIPINE. [Concomitant]
     Active Substance: NIFEDIPINE
     Indication: HYPERTENSION
  6. DIAZEPAM. [Concomitant]
     Active Substance: DIAZEPAM
     Indication: SLEEP DISORDER
  7. ATORVASTATIN [Concomitant]
     Active Substance: ATORVASTATIN
     Indication: BLOOD CHOLESTEROL INCREASED
  8. MODERNA COVID?19 VACCINE [Concomitant]
     Active Substance: CX-024414
     Indication: COVID-19 IMMUNISATION
     Dosage: MODERNA
     Route: 030
     Dates: start: 20210216, end: 20210216
  9. VITAMIN B2 [Concomitant]
     Active Substance: RIBOFLAVIN
     Indication: VITAMIN SUPPLEMENTATION
  10. FERROUS SULFATE. [Concomitant]
     Active Substance: FERROUS SULFATE
     Indication: IRON DEFICIENCY

REACTIONS (2)
  - Back pain [Recovered/Resolved]
  - Chronic obstructive pulmonary disease [Recovering/Resolving]

NARRATIVE: CASE EVENT DATE: 2019
